FAERS Safety Report 8864147 (Version 1)
Quarter: 2012Q4

REPORT INFORMATION
  Report Type: 
  Country: US (occurrence: US)
  Receive Date: 20121024
  Receipt Date: 20121024
  Transmission Date: 20130627
  Serious: No
  Sender: FDA-Public Use
  Company Number: US-AMGEN-USASP2011066068

PATIENT
  Sex: Female

DRUGS (10)
  1. ENBREL [Suspect]
     Indication: PRODUCT USED FOR UNKNOWN INDICATION
     Dosage: 50 mg, qwk
     Route: 058
  2. CELEBREX [Concomitant]
     Dosage: 100 mg, UNK
  3. METHOTREXATE [Concomitant]
     Dosage: 2.5 mg, UNK
  4. VIVELLE-DOT [Concomitant]
     Dosage: 0.025 mg, UNK
  5. ENALAPRIL [Concomitant]
     Dosage: 20 mg, UNK
  6. LOVASTATIN [Concomitant]
     Dosage: 20 mg, UNK
  7. ACTONEL [Concomitant]
     Dosage: 35 mg, UNK
  8. VITAMIN D /00107901/ [Concomitant]
     Dosage: 1000 UNK, UNK
  9. ZETIA [Concomitant]
     Dosage: 10 mg, UNK
  10. FOLIC ACID [Concomitant]
     Dosage: 20 mg, UNK

REACTIONS (3)
  - Hot flush [Unknown]
  - Rash [Unknown]
  - Injection site pain [Unknown]
